FAERS Safety Report 18672887 (Version 1)
Quarter: 2020Q4

REPORT INFORMATION
  Report Type: Spontaneous
  Country: JP (occurrence: JP)
  Receive Date: 20201228
  Receipt Date: 20201228
  Transmission Date: 20210114
  Serious: Yes (Other)
  Sender: FDA-Public Use
  Company Number: JP-LUNDBECK-DKLU3005541

PATIENT
  Age: 3 Year
  Sex: Female
  Weight: 16 kg

DRUGS (19)
  1. SABRIL [Suspect]
     Active Substance: VIGABATRIN
     Route: 048
     Dates: start: 20190507, end: 20190520
  2. SABRIL [Suspect]
     Active Substance: VIGABATRIN
     Route: 048
     Dates: start: 20191217, end: 20200831
  3. SABRIL [Suspect]
     Active Substance: VIGABATRIN
     Indication: INFANTILE SPASMS
     Route: 048
     Dates: start: 20190304, end: 20190317
  4. SABRIL [Suspect]
     Active Substance: VIGABATRIN
     Route: 048
     Dates: start: 20190318, end: 20190401
  5. SABRIL [Suspect]
     Active Substance: VIGABATRIN
     Route: 048
     Dates: start: 20200901
  6. SABRIL [Suspect]
     Active Substance: VIGABATRIN
     Route: 048
     Dates: start: 20190402, end: 20190415
  7. SABRIL [Suspect]
     Active Substance: VIGABATRIN
     Route: 048
     Dates: start: 20191211, end: 20191216
  8. LAMOTRIGINE. [Concomitant]
     Active Substance: LAMOTRIGINE
     Indication: INFANTILE SPASMS
     Route: 065
     Dates: start: 20180730
  9. SABRIL [Suspect]
     Active Substance: VIGABATRIN
     Route: 048
     Dates: start: 20190625, end: 20190708
  10. SABRIL [Suspect]
     Active Substance: VIGABATRIN
     Route: 048
     Dates: start: 20190813, end: 20191203
  11. TOPINA [Concomitant]
     Active Substance: TOPIRAMATE
     Indication: INFANTILE SPASMS
     Route: 065
     Dates: start: 20181210
  12. SABRIL [Suspect]
     Active Substance: VIGABATRIN
     Route: 048
     Dates: start: 20190423, end: 20190506
  13. SABRIL [Suspect]
     Active Substance: VIGABATRIN
     Route: 048
     Dates: start: 20191204, end: 20191210
  14. SABRIL [Suspect]
     Active Substance: VIGABATRIN
     Route: 048
     Dates: start: 20190521, end: 20190609
  15. SABRIL [Suspect]
     Active Substance: VIGABATRIN
     Route: 048
     Dates: start: 20190610, end: 20190624
  16. VALERIN MAX [Concomitant]
     Indication: INFANTILE SPASMS
     Route: 065
     Dates: start: 20170502
  17. INCREMIN [Concomitant]
     Indication: IRON DEFICIENCY ANAEMIA
     Route: 065
     Dates: start: 20191217
  18. SABRIL [Suspect]
     Active Substance: VIGABATRIN
     Route: 048
     Dates: start: 20190709, end: 20190812
  19. SABRIL [Suspect]
     Active Substance: VIGABATRIN
     Route: 048
     Dates: start: 20190416, end: 20190422

REACTIONS (2)
  - Retinogram abnormal [Not Recovered/Not Resolved]
  - Astigmatism [Not Recovered/Not Resolved]

NARRATIVE: CASE EVENT DATE: 20190917
